FAERS Safety Report 5231584-1 (Version None)
Quarter: 2007Q1

REPORT INFORMATION
  Report Type: 
  Country: None (occurrence: None)
  Receive Date: 20070202
  Receipt Date: 20070122
  Transmission Date: 20070707
  Serious: Yes (Hospitalization)
  Sender: FDA-Public Use
  Company Number: 2007S1000064

PATIENT
  Age: 49 Year
  Sex: Female
  Weight: 87 kg

DRUGS (9)
  1. CUBICIN [Suspect]
     Indication: CELLULITIS
     Dosage: 350 MG; Q24H; IV
     Route: 042
     Dates: start: 20070102, end: 20070119
  2. CUBICIN [Suspect]
     Indication: POSTOPERATIVE WOUND INFECTION
     Dosage: 350 MG; Q24H; IV
     Route: 042
     Dates: start: 20070102, end: 20070119
  3. MONTELUKAST SODIUM [Concomitant]
  4. PREMARIN [Concomitant]
  5. FLUOXETINE [Concomitant]
  6. WARFARIN SODIUM [Concomitant]
  7. LEVOTHYROXINE SODIUM [Concomitant]
  8. AMOXICILLIN [Concomitant]
  9. LEVOFLOXACIN [Concomitant]

REACTIONS (3)
  - CATHETER RELATED COMPLICATION [None]
  - CATHETER SITE CELLULITIS [None]
  - VENOUS THROMBOSIS [None]
